FAERS Safety Report 7666649-8 (Version None)
Quarter: 2011Q3

REPORT INFORMATION
  Report Type: 
  Country: None (occurrence: None)
  Receive Date: 20110806
  Receipt Date: 20110330
  Transmission Date: 20111222
  Serious: No
  Sender: FDA-Public Use
  Company Number: US-ABBOTT-11P-163-0715485-00

PATIENT
  Sex: Male
  Weight: 97.156 kg

DRUGS (9)
  1. VIT D [Concomitant]
     Indication: PRODUCT USED FOR UNKNOWN INDICATION
  2. NIASPAN [Suspect]
     Indication: BLOOD CHOLESTEROL
     Dates: start: 20100801
  3. BYSTOLIC [Concomitant]
     Indication: PRODUCT USED FOR UNKNOWN INDICATION
  4. ASPIRIN [Concomitant]
     Indication: PRODUCT USED FOR UNKNOWN INDICATION
  5. CALCIUM ACETATE [Concomitant]
     Indication: PRODUCT USED FOR UNKNOWN INDICATION
  6. HYDROCHLOROTHIAZIDE [Concomitant]
     Indication: PRODUCT USED FOR UNKNOWN INDICATION
  7. MSM [Concomitant]
     Indication: PRODUCT USED FOR UNKNOWN INDICATION
  8. TRICOR [Concomitant]
     Indication: PRODUCT USED FOR UNKNOWN INDICATION
  9. VIT C [Concomitant]
     Indication: PRODUCT USED FOR UNKNOWN INDICATION

REACTIONS (5)
  - DRY SKIN [None]
  - FLUSHING [None]
  - SKIN DISCOLOURATION [None]
  - CHEST PAIN [None]
  - IMPAIRED HEALING [None]
